FAERS Safety Report 7776971-2 (Version None)
Quarter: 2011Q3

REPORT INFORMATION
  Report Type: 
  Country: None (occurrence: None)
  Receive Date: 20110926
  Receipt Date: 20110912
  Transmission Date: 20111222
  Serious: Yes (Hospitalization, Other)
  Sender: FDA-Public Use
  Company Number: US-BAYER-200935794NA

PATIENT
  Age: 34 Year
  Sex: Female
  Weight: 72.562 kg

DRUGS (10)
  1. YAZ [Suspect]
     Dosage: 1 DF (DAILY DOSE), QD, ORAL
     Route: 048
     Dates: start: 20071106, end: 20080826
  2. YASMIN [Suspect]
     Dosage: UNK
     Dates: start: 20031114, end: 20031212
  3. TEGRETOL [Concomitant]
  4. WELLBUTRIN [Concomitant]
     Dosage: 300 MG, QD
  5. PROVIGIL [Concomitant]
     Dosage: 200 MG, UNK
  6. YASMIN [Suspect]
     Dosage: UNK
     Dates: start: 20060130, end: 20071105
  7. PHENTERMINE [Concomitant]
     Dosage: 15 MG, BID
  8. PROZAC [Concomitant]
     Dosage: 20 MG, QD
  9. KLONOPIN [Concomitant]
     Dosage: .5 MG, TID
  10. KLONOPIN [Concomitant]

REACTIONS (2)
  - ISCHAEMIC STROKE [None]
  - CEREBROVASCULAR ACCIDENT [None]
